FAERS Safety Report 20076456 (Version 1)
Quarter: 2021Q4

REPORT INFORMATION
  Report Type: Report from Study
  Country: CO (occurrence: CO)
  Receive Date: 20211116
  Receipt Date: 20211116
  Transmission Date: 20220303
  Serious: Yes (Other)
  Sender: FDA-Public Use
  Company Number: CO-ViiV Healthcare Limited-CO2021GSK193982

PATIENT
  Sex: Male
  Weight: 29 kg

DRUGS (2)
  1. LAMIVUDINE AND ZIDOVUDINE [Suspect]
     Active Substance: LAMIVUDINE\ZIDOVUDINE
     Dosage: 1 DF, BID
     Dates: start: 20150406, end: 201508
  2. EFAVIRENZ [Suspect]
     Active Substance: EFAVIRENZ
     Indication: HIV infection
     Dosage: 200 MG, TWO TABLETS IN THE NIGHT
     Dates: start: 20150406, end: 201508

REACTIONS (3)
  - Pathogen resistance [Unknown]
  - Viral mutation identified [Unknown]
  - Virologic failure [Unknown]
